FAERS Safety Report 13746811 (Version 1)
Quarter: 2017Q3

REPORT INFORMATION
  Report Type: Spontaneous
  Country: CN (occurrence: CN)
  Receive Date: 20170712
  Receipt Date: 20170712
  Transmission Date: 20171127
  Serious: Yes (Other)
  Sender: FDA-Public Use
  Company Number: CN-FRESENIUS KABI-FK201705908

PATIENT
  Age: 74 Year
  Sex: Female
  Weight: 52 kg

DRUGS (1)
  1. PROPOFOL LCT/MCT 10 MG/ML FRESENIUS [Suspect]
     Active Substance: PROPOFOL
     Indication: ANAESTHESIA
     Route: 041
     Dates: start: 20170428, end: 20170428

REACTIONS (2)
  - Anaphylactic shock [Recovered/Resolved]
  - Urticaria [Recovered/Resolved]

NARRATIVE: CASE EVENT DATE: 20170428
